FAERS Safety Report 9840394 (Version 1)
Quarter: 2014Q1

REPORT INFORMATION
  Report Type: Spontaneous
  Country: US (occurrence: None)
  Receive Date: 20140121
  Receipt Date: 20140121
  Transmission Date: 20141002
  Serious: Yes (Other)
  Sender: FDA-Public Use
  Company Number: None

PATIENT
  Age: 60 Year
  Sex: Female
  Weight: 69.4 kg

DRUGS (1)
  1. LOSARTAN POTASSIUM-HCTZ [Suspect]
     Indication: ESSENTIAL HYPERTENSION
     Dates: start: 201110, end: 201204

REACTIONS (6)
  - Malaise [None]
  - Nausea [None]
  - Blood pressure inadequately controlled [None]
  - Fatigue [None]
  - Headache [None]
  - Product substitution issue [None]
